FAERS Safety Report 15678473 (Version 1)
Quarter: 2018Q4

REPORT INFORMATION
  Report Type: Spontaneous
  Country: US (occurrence: US)
  Receive Date: 20181201
  Receipt Date: 20181201
  Transmission Date: 20190205
  Serious: No
  Sender: FDA-Public Use
  Company Number: US-ASTRAZENECA-2018SF48498

PATIENT
  Age: 20937 Day
  Sex: Female
  Weight: 70.3 kg

DRUGS (2)
  1. BYDUREON BCISE [Suspect]
     Active Substance: EXENATIDE
     Indication: INSULIN-REQUIRING TYPE 2 DIABETES MELLITUS
     Route: 058
     Dates: start: 20181031
  2. BYDUREON [Suspect]
     Active Substance: EXENATIDE
     Indication: TYPE 2 DIABETES MELLITUS
     Route: 058

REACTIONS (6)
  - Wrong technique in device usage process [Recovered/Resolved]
  - Injection site haemorrhage [Unknown]
  - Device malfunction [Unknown]
  - Injection site mass [Not Recovered/Not Resolved]
  - Product dose omission [Not Recovered/Not Resolved]
  - Injection site pain [Unknown]

NARRATIVE: CASE EVENT DATE: 20181031
